FAERS Safety Report 4536657-4 (Version None)
Quarter: 2004Q4

REPORT INFORMATION
  Report Type: 
  Country: None (occurrence: None)
  Receive Date: 20041220
  Receipt Date: 20041203
  Transmission Date: 20050328
  Serious: Yes (Hospitalization)
  Sender: FDA-Public Use
  Company Number: 201278

PATIENT
  Age: 67 Year
  Sex: Female
  Weight: 131.5431 kg

DRUGS (3)
  1. AVONEX [Suspect]
     Indication: MULTIPLE SCLEROSIS
     Dosage: SEE IMAGE
     Route: 030
     Dates: start: 20010701, end: 20030801
  2. AVONEX [Suspect]
     Indication: MULTIPLE SCLEROSIS
     Dosage: SEE IMAGE
     Route: 030
     Dates: start: 20030801
  3. MEDICATION NOS [Concomitant]

REACTIONS (4)
  - ANKLE FRACTURE [None]
  - DEPRESSION [None]
  - FALL [None]
  - TRANSIENT ISCHAEMIC ATTACK [None]
